FAERS Safety Report 8386457-2 (Version None)
Quarter: 2012Q2

REPORT INFORMATION
  Report Type: 
  Country: None (occurrence: None)
  Receive Date: 20120523
  Receipt Date: 20120511
  Transmission Date: 20120825
  Serious: Yes (Death, Hospitalization)
  Sender: FDA-Public Use
  Company Number: 2012050100

PATIENT
  Age: 82 Year
  Sex: Male
  Weight: 80 kg

DRUGS (17)
  1. RIFAMPICIN [Suspect]
     Indication: INFECTION
     Dosage: 900 MG (450 MG, 2 IN 1 D), ORAL
     Route: 048
     Dates: start: 20111201, end: 20120103
  2. XARELTO [Suspect]
     Dosage: 10 MG (10 MG, 1 IN 1 D), ORAL
     Route: 048
     Dates: start: 20110101, end: 20120103
  3. PLAVIX [Suspect]
     Dosage: 75 MG (75 MG, 1 IN 1 D), ORAL
     Route: 048
     Dates: end: 20110101
  4. PANTOPRAZOLE [Suspect]
     Dosage: 40 MG (40 MG, 1 IN 1 D), ORAL
     Route: 048
     Dates: end: 20120105
  5. HALCION [Concomitant]
  6. METAMUCIL (PLANTAGO OVATA) [Concomitant]
  7. ATACAND [Suspect]
     Dosage: 0.5 DOSAGE FORMS (0.5 DOSAGE FORMS, 1 IN 1 D), ORAL
     Route: 048
     Dates: end: 20120105
  8. MAGNESIOCARD (MAGNESIUM ASPARTATE HYDROCHLORIDE) [Concomitant]
  9. TORSEMIDE [Suspect]
     Dosage: 5 MG (5 MG, 1 IN 1 D), ORAL
     Route: 048
     Dates: end: 20110101
  10. MINOCIN [Suspect]
     Indication: INFECTION
     Dosage: 200 MG (50 MG, 4 IN 1 D), ORAL
     Route: 048
     Dates: start: 20111201, end: 20120105
  11. ASPIRIN [Suspect]
     Dosage: 100 MG (100 MG, 1 IN 1 D), ORAL
     Route: 048
     Dates: end: 20120105
  12. NOVALGIN (METAMIZOLE SODIUM) [Concomitant]
  13. SERETIDE (FLUTICASONE PROPIONATE, SALMETEROL XINAFOATE) [Concomitant]
  14. DUODART (TAMSULOSIN HYDROCHLORIDE, DUTASTERIDE) [Concomitant]
  15. NEBIVOLOL HCL [Concomitant]
  16. ARTEOPTIC (CARTEOLOL HYDROCHLORIDE 2 PERCENT) [Concomitant]
  17. NEURONTIN [Concomitant]

REACTIONS (23)
  - ASPARTATE AMINOTRANSFERASE INCREASED [None]
  - HEPATITIS [None]
  - PULMONARY EMBOLISM [None]
  - DRUG INTERACTION [None]
  - JAUNDICE [None]
  - DIARRHOEA [None]
  - CHOLESTASIS [None]
  - HYPERVENTILATION [None]
  - CONDITION AGGRAVATED [None]
  - BLOOD ALKALINE PHOSPHATASE INCREASED [None]
  - ALANINE AMINOTRANSFERASE INCREASED [None]
  - ABDOMINAL PAIN UPPER [None]
  - GENERAL PHYSICAL HEALTH DETERIORATION [None]
  - GAMMA-GLUTAMYLTRANSFERASE INCREASED [None]
  - GASTROENTERITIS [None]
  - LIVER INJURY [None]
  - HYPERBILIRUBINAEMIA [None]
  - HEPATOTOXICITY [None]
  - VOMITING [None]
  - INFECTION [None]
  - DYSPNOEA [None]
  - THROMBOSIS [None]
  - RENAL FAILURE CHRONIC [None]
